FAERS Safety Report 16903016 (Version 2)
Quarter: 2019Q4

REPORT INFORMATION
  Report Type: Report from Study
  Country: US (occurrence: US)
  Receive Date: 20191010
  Receipt Date: 20191018
  Transmission Date: 20200122
  Serious: Yes (Hospitalization, Other)
  Sender: FDA-Public Use
  Company Number: US-PFIZER INC-2019202837

PATIENT
  Age: 64 Year
  Sex: Female

DRUGS (3)
  1. ARIMIDEX [Concomitant]
     Active Substance: ANASTROZOLE
     Dosage: UNK
  2. IBRANCE [Suspect]
     Active Substance: PALBOCICLIB
     Indication: BREAST CANCER FEMALE
     Dosage: 100 MG, CYCLIC  (DAILY 21 DAYS ON AND 7 DAYS OFF)
     Route: 048
     Dates: start: 20190426, end: 20190517
  3. IBRANCE [Suspect]
     Active Substance: PALBOCICLIB
     Dosage: 100 MG, CYCLIC (21 DAYS ON AND 7 DAYS OFF)
     Route: 048
     Dates: start: 201906

REACTIONS (24)
  - Epistaxis [Recovered/Resolved]
  - Abdominal pain [Unknown]
  - Rash [Recovered/Resolved]
  - Rhinorrhoea [Recovered/Resolved]
  - Lip exfoliation [Unknown]
  - Arthralgia [Not Recovered/Not Resolved]
  - Insomnia [Unknown]
  - Diarrhoea [Unknown]
  - Lip pain [Recovered/Resolved]
  - Stomatitis [Recovered/Resolved]
  - Enteritis [Unknown]
  - Leukopenia [Recovering/Resolving]
  - Rash pruritic [Unknown]
  - Throat irritation [Unknown]
  - Nasal discomfort [Recovered/Resolved]
  - Dysphagia [Unknown]
  - Taste disorder [Recovered/Resolved]
  - Fatigue [Recovering/Resolving]
  - Oral pain [Recovered/Resolved]
  - Oropharyngeal pain [Unknown]
  - Oral mucosal exfoliation [Unknown]
  - Alopecia [Recovering/Resolving]
  - Nausea [Unknown]
  - White blood cell count decreased [Unknown]

NARRATIVE: CASE EVENT DATE: 2019
